FAERS Safety Report 10949610 (Version 1)
Quarter: 2015Q1

REPORT INFORMATION
  Report Type: Spontaneous
  Country: US (occurrence: None)
  Receive Date: 20150323
  Receipt Date: 20150323
  Transmission Date: 20150721
  Serious: Yes (Disabling)
  Sender: FDA-Public Use
  Company Number: None

PATIENT
  Age: 52 Year

DRUGS (1)
  1. REMICADE [Suspect]
     Active Substance: INFLIXIMAB
     Indication: SARCOIDOSIS
     Dosage: INFUSION

REACTIONS (6)
  - Chills [None]
  - Pyrexia [None]
  - Hyperhidrosis [None]
  - Headache [None]
  - Nausea [None]
  - Chest pain [None]

NARRATIVE: CASE EVENT DATE: 20150320
